FAERS Safety Report 7500969-2 (Version None)
Quarter: 2011Q2

REPORT INFORMATION
  Report Type: 
  Country: None (occurrence: None)
  Receive Date: 20110524
  Receipt Date: 20110517
  Transmission Date: 20111010
  Serious: Yes (Other)
  Sender: FDA-Public Use
  Company Number: US-PFIZER INC-2011103071

PATIENT
  Sex: Female
  Weight: 45.351 kg

DRUGS (8)
  1. AZULFIDINE [Suspect]
     Indication: CROHN'S DISEASE
     Dosage: 1000 MG, 3X/DAY
     Route: 048
  2. IMURAN [Concomitant]
     Dosage: UNK
  3. PRILOSEC [Concomitant]
     Dosage: UNK
  4. ASCORBIC ACID [Concomitant]
     Dosage: UNK
  5. LEVOTHYROXINE [Concomitant]
     Dosage: UNK
  6. VITAMIN E [Concomitant]
     Dosage: UNK
  7. FOLIC ACID [Concomitant]
     Dosage: UNK
  8. VITAMIN D [Concomitant]
     Dosage: UNK

REACTIONS (4)
  - HEARING IMPAIRED [None]
  - FOREIGN BODY [None]
  - CHOKING [None]
  - PIGMENTATION DISORDER [None]
